FAERS Safety Report 22537906 (Version 2)
Quarter: 2023Q2

REPORT INFORMATION
  Report Type: Spontaneous
  Country: TR (occurrence: TR)
  Receive Date: 20230608
  Receipt Date: 20230623
  Transmission Date: 20230721
  Serious: Yes (Hospitalization)
  Sender: FDA-Public Use
  Company Number: TR-TEVA-2023-TR-2894199

PATIENT
  Age: 70 Year
  Sex: Male

DRUGS (1)
  1. CAPECITABINE [Suspect]
     Active Substance: CAPECITABINE
     Indication: Rectal cancer
     Dosage: 1650 MG/M2 DAILY; 825MG/M2 TWICE DAILY = 3000MG/DAY, FIVE DAYS PER WEEK
     Route: 065

REACTIONS (1)
  - Cutaneous vasculitis [Recovering/Resolving]
